FAERS Safety Report 21588100 (Version 1)
Quarter: 2022Q4

REPORT INFORMATION
  Report Type: Report from Study
  Country: US (occurrence: US)
  Receive Date: 20221114
  Receipt Date: 20221114
  Transmission Date: 20230113
  Serious: No
  Sender: FDA-Public Use
  Company Number: US-ABBVIE-22K-163-4438511-00

PATIENT
  Age: 31 Year
  Sex: Female

DRUGS (5)
  1. HUMIRA [Suspect]
     Active Substance: ADALIMUMAB
     Indication: Hidradenitis
     Dosage: CITRATE FREE, STRENGTH:40 MG
     Route: 058
     Dates: start: 20211101
  2. HUMIRA [Suspect]
     Active Substance: ADALIMUMAB
     Dosage: CITRATE FREE, STRENGTH:40 MG
     Route: 058
  3. HUMIRA [Suspect]
     Active Substance: ADALIMUMAB
     Dosage: CITRATE FREE, STRENGTH:40 MG
     Route: 058
     Dates: start: 202112
  4. HUMIRA [Suspect]
     Active Substance: ADALIMUMAB
     Route: 058
  5. HUMIRA [Suspect]
     Active Substance: ADALIMUMAB
     Route: 058

REACTIONS (10)
  - Inflammation [Recovering/Resolving]
  - Device issue [Recovering/Resolving]
  - Dyspnoea [Not Recovered/Not Resolved]
  - Axillary pain [Unknown]
  - Loss of personal independence in daily activities [Unknown]
  - Hidradenitis [Recovering/Resolving]
  - Therapeutic product effect decreased [Recovering/Resolving]
  - COVID-19 [Recovering/Resolving]
  - Immunodeficiency [Recovering/Resolving]
  - Staphylococcal infection [Unknown]

NARRATIVE: CASE EVENT DATE: 20220401
